FAERS Safety Report 17387998 (Version 2)
Quarter: 2020Q2

REPORT INFORMATION
  Report Type: Spontaneous
  Country: US (occurrence: US)
  Receive Date: 20200206
  Receipt Date: 20200501
  Transmission Date: 20200713
  Serious: No
  Sender: FDA-Public Use
  Company Number: US-RADIUS HEALTH INC.-2020US000108

PATIENT
  Age: 68 Year
  Sex: Female

DRUGS (2)
  1. TYMLOS [Suspect]
     Active Substance: ABALOPARATIDE
     Indication: OSTEOPOROSIS
     Dosage: 80 MCG, QD
     Route: 058
     Dates: start: 20200205, end: 20200401
  2. TYMLOS [Suspect]
     Active Substance: ABALOPARATIDE
     Indication: OSTEOPOROSIS POSTMENOPAUSAL
     Dosage: 80 MCG, QD
     Route: 058
     Dates: start: 20200106, end: 20200129

REACTIONS (11)
  - Asthenia [Recovering/Resolving]
  - Dehydration [Recovering/Resolving]
  - Fatigue [Recovering/Resolving]
  - Inappropriate schedule of product administration [Recovered/Resolved]
  - Off label use [Recovered/Resolved]
  - Headache [Recovering/Resolving]
  - Dizziness [Recovering/Resolving]
  - Vomiting [Not Recovered/Not Resolved]
  - Nausea [Not Recovered/Not Resolved]
  - Ill-defined disorder [Recovering/Resolving]
  - Product use complaint [Unknown]

NARRATIVE: CASE EVENT DATE: 20200106
